FAERS Safety Report 9474597 (Version 1)
Quarter: 2013Q3

REPORT INFORMATION
  Report Type: Spontaneous
  Country: FR (occurrence: FR)
  Receive Date: 20130823
  Receipt Date: 20130823
  Transmission Date: 20140515
  Serious: Yes (Life-Threatening, Hospitalization)
  Sender: FDA-Public Use
  Company Number: FR-GLAXOSMITHKLINE-B0915335A

PATIENT
  Age: 59 Year
  Sex: Male

DRUGS (1)
  1. ARIXTRA [Suspect]
     Indication: THROMBOPHLEBITIS
     Route: 058
     Dates: end: 20130718

REACTIONS (7)
  - Cerebral haemorrhage [Not Recovered/Not Resolved]
  - Headache [Unknown]
  - Paraplegia [Unknown]
  - Loss of consciousness [Unknown]
  - Haematoma [Unknown]
  - Cerebral ischaemia [Unknown]
  - Subarachnoid haemorrhage [Unknown]
